FAERS Safety Report 11695948 (Version 1)
Quarter: 2015Q4

REPORT INFORMATION
  Report Type: Spontaneous
  Country: US (occurrence: None)
  Receive Date: 20151103
  Receipt Date: 20151103
  Transmission Date: 20160304
  Serious: No
  Sender: FDA-Public Use
  Company Number: None

PATIENT
  Age: 61 Year
  Sex: Female
  Weight: 71.67 kg

DRUGS (2)
  1. RECLAST [Suspect]
     Active Substance: ZOLEDRONIC ACID
     Indication: OSTEOPOROSIS
     Dosage: 1 TIME ANNUALLY
     Route: 042
     Dates: start: 20151029, end: 20151029
  2. OSCAL [Concomitant]
     Active Substance: CALCIUM CARBONATE

REACTIONS (14)
  - Back pain [None]
  - Musculoskeletal pain [None]
  - Muscle spasms [None]
  - Musculoskeletal chest pain [None]
  - Bedridden [None]
  - Chills [None]
  - Pain [None]
  - Arthralgia [None]
  - Neck pain [None]
  - Activities of daily living impaired [None]
  - Headache [None]
  - Migraine [None]
  - Pain in extremity [None]
  - Joint swelling [None]

NARRATIVE: CASE EVENT DATE: 20151029
